FAERS Safety Report 8512426-5 (Version None)
Quarter: 2012Q3

REPORT INFORMATION
  Report Type: 
  Country: None (occurrence: None)
  Receive Date: 20120716
  Receipt Date: 20120710
  Transmission Date: 20120928
  Serious: Yes (Other)
  Sender: FDA-Public Use
  Company Number: CA-ROCHE-1087430

PATIENT
  Sex: Male

DRUGS (3)
  1. ACETAMINOPHEN [Concomitant]
     Indication: HEADACHE
  2. ACETAMINOPHEN [Concomitant]
     Indication: ARTHRITIS
  3. VEMURAFENIB [Suspect]
     Indication: METASTATIC MALIGNANT MELANOMA
     Route: 048
     Dates: start: 20120630, end: 20120710

REACTIONS (3)
  - BLISTER [None]
  - RASH GENERALISED [None]
  - SUNBURN [None]
